FAERS Safety Report 16992052 (Version 2)
Quarter: 2020Q1

REPORT INFORMATION
  Report Type: Spontaneous
  Country: DE (occurrence: DE)
  Receive Date: 20191105
  Receipt Date: 20200110
  Transmission Date: 20200409
  Serious: Yes (Other)
  Sender: FDA-Public Use
  Company Number: DE-SUN PHARMACEUTICAL INDUSTRIES LTD-2019RR-226574

PATIENT
  Age: 30 Year
  Sex: Female
  Weight: 64 kg

DRUGS (1)
  1. SERTRALINE [Suspect]
     Active Substance: SERTRALINE HYDROCHLORIDE
     Indication: DEPRESSION
     Dosage: INITIALDOSIS AUF 75 MG AUFDOSIERT, AUFGRUND DER REZIDIVIERENDEN GASTRITIDEN INZWISCHEN AUF 25 MG ...
     Route: 048
     Dates: start: 20180808

REACTIONS (4)
  - Duodenitis [Recovering/Resolving]
  - Gastritis [Recovering/Resolving]
  - Gastric pH decreased [Recovering/Resolving]
  - Nervous system disorder [Not Recovered/Not Resolved]

NARRATIVE: CASE EVENT DATE: 20180810
